FAERS Safety Report 14609210 (Version 1)
Quarter: 2018Q1

REPORT INFORMATION
  Report Type: Spontaneous
  Country: FR (occurrence: FR)
  Receive Date: 20180307
  Receipt Date: 20180307
  Transmission Date: 20180509
  Serious: Yes (Hospitalization)
  Sender: FDA-Public Use
  Company Number: FR-SA-2018SA053586

PATIENT

DRUGS (13)
  1. PARACETAMOL [Suspect]
     Active Substance: ACETAMINOPHEN
     Route: 048
  2. MONTELUKAST SODIUM. [Suspect]
     Active Substance: MONTELUKAST SODIUM
     Route: 048
  3. CALCIUM [Suspect]
     Active Substance: CALCIUM
     Dosage: EFFERVESCENT TABLET
     Route: 048
  4. STILNOX [Suspect]
     Active Substance: ZOLPIDEM TARTRATE
     Route: 048
  5. TRANXENE [Suspect]
     Active Substance: CLORAZEPATE DIPOTASSIUM
     Route: 048
  6. CARDENSIEL [Suspect]
     Active Substance: BISOPROLOL FUMARATE
     Route: 048
  7. DAFALGAN [Suspect]
     Active Substance: ACETAMINOPHEN
     Route: 048
  8. MONTELUKAST [Suspect]
     Active Substance: MONTELUKAST SODIUM
     Route: 048
  9. SYMBICORT [Suspect]
     Active Substance: BUDESONIDE\FORMOTEROL FUMARATE DIHYDRATE
     Route: 055
  10. BUDESONIDE. [Suspect]
     Active Substance: BUDESONIDE
     Dosage: INHALATION POWDER
     Route: 055
  11. SPIRIVA [Suspect]
     Active Substance: TIOTROPIUM BROMIDE MONOHYDRATE
     Route: 055
  12. FOSAMAX [Suspect]
     Active Substance: ALENDRONATE SODIUM
     Route: 048
  13. ABILIFY [Suspect]
     Active Substance: ARIPIPRAZOLE
     Route: 048

REACTIONS (6)
  - Anxiety [Unknown]
  - Contusion [Unknown]
  - Gait disturbance [Unknown]
  - Fall [Unknown]
  - Pain [Unknown]
  - Psychomotor skills impaired [Unknown]

NARRATIVE: CASE EVENT DATE: 20150825
